FAERS Safety Report 18200137 (Version 1)
Quarter: 2020Q3

REPORT INFORMATION
  Report Type: Spontaneous
  Country: CA (occurrence: CA)
  Receive Date: 20200827
  Receipt Date: 20200827
  Transmission Date: 20201103
  Serious: Yes (Hospitalization)
  Sender: FDA-Public Use
  Company Number: CA-TEVA-2020-CA-1817848

PATIENT
  Age: 69 Year
  Sex: Female

DRUGS (1)
  1. ETOPOSIDE. [Suspect]
     Active Substance: ETOPOSIDE
     Route: 040

REACTIONS (4)
  - Unresponsive to stimuli [Recovered/Resolved]
  - Blood pressure abnormal [Recovered/Resolved]
  - Foaming at mouth [Recovered/Resolved]
  - Seizure [Recovered/Resolved]
